FAERS Safety Report 17860940 (Version 1)
Quarter: 2020Q2

REPORT INFORMATION
  Report Type: Spontaneous
  Country: JP (occurrence: JP)
  Receive Date: 20200604
  Receipt Date: 20200604
  Transmission Date: 20200714
  Serious: Yes (Other)
  Sender: FDA-Public Use
  Company Number: JP-INCYTE CORPORATION-2020IN005075

PATIENT

DRUGS (1)
  1. JAKAVI [Suspect]
     Active Substance: RUXOLITINIB
     Indication: MYELOFIBROSIS
     Dosage: UNK
     Route: 048

REACTIONS (5)
  - Oesophageal carcinoma [Unknown]
  - Radiation dysphagia [Unknown]
  - Second primary malignancy [Unknown]
  - Radiation oesophagitis [Unknown]
  - Wrong technique in product usage process [Unknown]
